FAERS Safety Report 10156691 (Version 2)
Quarter: 2014Q2

REPORT INFORMATION
  Report Type: Spontaneous
  Country: US (occurrence: US)
  Receive Date: 20140507
  Receipt Date: 20140625
  Transmission Date: 20141212
  Serious: No
  Sender: FDA-Public Use
  Company Number: US-009507513-1405USA003394

PATIENT
  Age: 21 Year
  Sex: Female
  Weight: 62.13 kg

DRUGS (1)
  1. NUVARING [Suspect]
     Dosage: 1 DF; 1 RING EVERY 3 WEEKS
     Route: 067
     Dates: start: 20140414

REACTIONS (3)
  - Inappropriate schedule of drug administration [Unknown]
  - Inappropriate schedule of drug administration [Unknown]
  - No adverse event [Unknown]
